FAERS Safety Report 21782317 (Version 1)
Quarter: 2022Q4

REPORT INFORMATION
  Report Type: Spontaneous
  Country: US (occurrence: None)
  Receive Date: 20221223
  Receipt Date: 20221223
  Transmission Date: 20230112
  Serious: Yes (Death)
  Sender: FDA-Public Use
  Company Number: None

PATIENT
  Sex: Female

DRUGS (12)
  1. ORENCIA [Suspect]
     Active Substance: ABATACEPT
     Indication: Rheumatoid arthritis
     Dosage: FREQUENCY : WEEKLY;?
     Route: 058
     Dates: start: 20180427
  2. ATORVASTATIN [Concomitant]
     Active Substance: ATORVASTATIN
  3. AUBAGIO [Concomitant]
     Active Substance: TERIFLUNOMIDE
  4. CALCIUM [Concomitant]
     Active Substance: CALCIUM
  5. LANSOPRAZOLE [Concomitant]
  6. METOPROL TAR [Concomitant]
  7. NIFEDIPINE [Concomitant]
  8. PREDNISONE [Concomitant]
     Active Substance: PREDNISONE
  9. VITAMIN B-12 [Concomitant]
  10. VITAMIN B-6 [Concomitant]
  11. VITAMIN C [Concomitant]
     Active Substance: ASCORBIC ACID
  12. WARFARIN [Concomitant]
     Active Substance: WARFARIN

REACTIONS (1)
  - Death [None]
